FAERS Safety Report 12563068 (Version 1)
Quarter: 2016Q3

REPORT INFORMATION
  Report Type: Spontaneous
  Country: US (occurrence: US)
  Receive Date: 20160715
  Receipt Date: 20160715
  Transmission Date: 20161109
  Serious: Yes (Other)
  Sender: FDA-Public Use
  Company Number: US-PFIZER INC-2016338665

PATIENT
  Age: 67 Year
  Sex: Male

DRUGS (3)
  1. 5-FLUOROURACIL [Suspect]
     Active Substance: FLUOROURACIL
     Indication: PANCREATIC CARCINOMA
     Dosage: 4000 MG, CYCLIC (14 NUMBERS CYCLES: 12 START)
     Route: 042
     Dates: start: 20150324
  2. LEUCOVORIN. [Suspect]
     Active Substance: LEUCOVORIN
     Indication: PANCREATIC CARCINOMA
     Dosage: 800 MG, CYCLIC  (14 NUMBERS CYCLES: 12 START)
     Route: 042
     Dates: start: 20150324
  3. ONDANSETRON [Suspect]
     Active Substance: ONDANSETRON
     Dosage: 8 MG, UNK
     Route: 042

REACTIONS (2)
  - Pancreatic carcinoma [Unknown]
  - Disease progression [Unknown]
